FAERS Safety Report 8403016-3 (Version None)
Quarter: 2012Q2

REPORT INFORMATION
  Report Type: 
  Country: None (occurrence: None)
  Receive Date: 20120601
  Receipt Date: 20120529
  Transmission Date: 20120825
  Serious: Yes (Death)
  Sender: FDA-Public Use
  Company Number: BR-PFIZER INC-2012129081

PATIENT
  Sex: Female

DRUGS (3)
  1. ALPRAZOLAM [Suspect]
     Dosage: UNK
     Route: 048
  2. CLONAZEPAM [Concomitant]
     Dosage: UNK
  3. DEPAKENE [Concomitant]
     Dosage: UNK

REACTIONS (1)
  - CHOKING [None]
